FAERS Safety Report 12215319 (Version 1)
Quarter: 2016Q1

REPORT INFORMATION
  Report Type: Report from Study
  Country: FR (occurrence: FR)
  Receive Date: 20160328
  Receipt Date: 20160328
  Transmission Date: 20160526
  Serious: Yes (Death)
  Sender: FDA-Public Use
  Company Number: FR-MYLANLABS-2016M1012797

PATIENT

DRUGS (5)
  1. FLUOROURACIL. [Suspect]
     Active Substance: FLUOROURACIL
     Indication: NEOPLASM MALIGNANT
     Dosage: 750MG/M2 OVER 24H ON DAYS 1-5 IN EACH CYCLE.
     Route: 041
  2. CIPROFLOXACIN. [Concomitant]
     Active Substance: CIPROFLOXACIN
     Indication: ANTIBIOTIC PROPHYLAXIS
     Dosage: 500MG EVERY 12 H FROM DAY 5 TO DAY 10
     Route: 065
  3. AFLIBERCEPT [Suspect]
     Active Substance: AFLIBERCEPT
     Indication: NEOPLASM MALIGNANT
     Dosage: 6MG/KG OVER 1H ON DAY 1
     Route: 041
  4. CISPLATIN. [Suspect]
     Active Substance: CISPLATIN
     Indication: NEOPLASM MALIGNANT
     Dosage: 75MG/M2 OVER 1H ON DAY1
     Route: 041
  5. DOCETAXEL. [Suspect]
     Active Substance: DOCETAXEL
     Indication: NEOPLASM MALIGNANT
     Dosage: DAY1 IMMEDIATELY AFTER THE AFLIBERCEPT IV INFUSION.
     Route: 041

REACTIONS (1)
  - Gastrointestinal haemorrhage [Fatal]
